FAERS Safety Report 5475076-3 (Version None)
Quarter: 2007Q4

REPORT INFORMATION
  Report Type: 
  Country: None (occurrence: None)
  Receive Date: 20071002
  Receipt Date: 20070920
  Transmission Date: 20080405
  Serious: Yes (Disabling)
  Sender: FDA-Public Use
  Company Number: JP-PFIZER INC-2007061908

PATIENT
  Age: 70 Year
  Sex: Female

DRUGS (13)
  1. ZITHROMAX [Suspect]
     Indication: NASOPHARYNGITIS
     Dosage: DAILY DOSE:500MG
     Route: 048
     Dates: start: 20070414, end: 20070416
  2. THYRADIN S [Concomitant]
  3. MECLOCELIN [Concomitant]
  4. CEFPODOXIME PROXETIL [Concomitant]
     Dates: start: 20070423, end: 20070426
  5. PA [Concomitant]
     Dates: start: 20070423, end: 20070426
  6. FLAVERIC [Concomitant]
     Dates: start: 20070423, end: 20070426
  7. MYONAL [Concomitant]
  8. INFREE S [Concomitant]
  9. RIVOTRIL [Concomitant]
  10. AMLODIPINE [Concomitant]
  11. JUVELA [Concomitant]
  12. METHYCOBAL [Concomitant]
  13. OPALMON [Concomitant]

REACTIONS (3)
  - AGEUSIA [None]
  - ANOSMIA [None]
  - PAROSMIA [None]
